FAERS Safety Report 5890525-4 (Version None)
Quarter: 2008Q3

REPORT INFORMATION
  Report Type: 
  Country: None (occurrence: None)
  Receive Date: 20080922
  Receipt Date: 20080916
  Transmission Date: 20090109
  Serious: Yes (Death, Hospitalization)
  Sender: FDA-Public Use
  Company Number: US-BAYER-200830042NA

PATIENT
  Age: 56 Year
  Sex: Female
  Weight: 67 kg

DRUGS (8)
  1. SORAFENIB [Suspect]
     Indication: UTERINE CANCER
     Dosage: TOTAL DAILY DOSE: 400 MG  UNIT DOSE: 200 MG
     Route: 048
     Dates: start: 20080609, end: 20080623
  2. SORAFENIB [Suspect]
     Dosage: TOTAL DAILY DOSE: 100 MG  UNIT DOSE: 200 MG
     Route: 048
     Dates: start: 20080703, end: 20080717
  3. BEVACIZUMAB [Suspect]
     Indication: UTERINE CANCER
     Route: 042
     Dates: start: 20080609
  4. BEVACIZUMAB [Suspect]
     Route: 042
     Dates: end: 20080714
  5. PROPRANOLOL [Concomitant]
  6. LOSARTAN [Concomitant]
  7. VITAMIN B6 [Concomitant]
  8. IBUPROFEN [Concomitant]

REACTIONS (2)
  - DEEP VEIN THROMBOSIS [None]
  - SUDDEN DEATH [None]
